FAERS Safety Report 4776584-0 (Version None)
Quarter: 2005Q3

REPORT INFORMATION
  Report Type: 
  Country: None (occurrence: None)
  Receive Date: 20050921
  Receipt Date: 20050908
  Transmission Date: 20060218
  Serious: Yes (Hospitalization, Other)
  Sender: FDA-Public Use
  Company Number: 2005115581

PATIENT
  Age: 81 Year
  Sex: Female
  Weight: 905.8333 kg

DRUGS (4)
  1. XALATAN [Suspect]
     Indication: GLAUCOMA
     Dosage: 3 MCG (1.5 MCG M, EVERY DAY), OPHTHALMIC
     Route: 047
     Dates: start: 20031023
  2. COSOPT [Concomitant]
  3. INSULIN (INSULIN) [Concomitant]
  4. ALL OTHER THERAPEUTIC PRODUCTS (ALL OTHER THERAPEUTIC PRODUCTS) [Concomitant]

REACTIONS (5)
  - ANXIETY [None]
  - DYSPNOEA [None]
  - MICTURITION URGENCY [None]
  - THERAPEUTIC PRODUCT INEFFECTIVE [None]
  - URINARY TRACT INFECTION [None]
